FAERS Safety Report 18578469 (Version 3)
Quarter: 2021Q2

REPORT INFORMATION
  Report Type: Spontaneous
  Country: US (occurrence: US)
  Receive Date: 20201204
  Receipt Date: 20210421
  Transmission Date: 20210717
  Serious: No
  Sender: FDA-Public Use
  Company Number: US-PFIZER INC-2020473128

PATIENT
  Age: 14 Year
  Sex: Male

DRUGS (3)
  1. GENOTROPIN [Suspect]
     Active Substance: SOMATROPIN
     Indication: AUTISM SPECTRUM DISORDER
     Dosage: 2 MG, DAILY
     Dates: start: 20130522
  2. GENOTROPIN [Suspect]
     Active Substance: SOMATROPIN
     Indication: ATTENTION DEFICIT HYPERACTIVITY DISORDER
  3. GENOTROPIN [Suspect]
     Active Substance: SOMATROPIN
     Indication: ANXIETY
     Dosage: 2 MG (SIX DAYS A WEEK)

REACTIONS (3)
  - Off label use [Unknown]
  - Drug dose omission by device [Unknown]
  - Device use issue [Unknown]
